FAERS Safety Report 20743737 (Version 1)
Quarter: 2022Q2

REPORT INFORMATION
  Report Type: Spontaneous
  Country: US (occurrence: US)
  Receive Date: 20220425
  Receipt Date: 20220425
  Transmission Date: 20220721
  Serious: No
  Sender: FDA-Public Use
  Company Number: US-TEVA-2022-US-2024278

PATIENT
  Age: 63 Year
  Sex: Male

DRUGS (2)
  1. BUDESONIDE [Suspect]
     Active Substance: BUDESONIDE
     Dosage: STRENGTH:0.5/2 MG/ML
     Route: 065
     Dates: end: 20220327
  2. ALBUTEROL [Concomitant]
     Active Substance: ALBUTEROL

REACTIONS (3)
  - Blood pressure decreased [Unknown]
  - Chills [Unknown]
  - Hyperhidrosis [Unknown]
